FAERS Safety Report 10244043 (Version 1)
Quarter: 2014Q2

REPORT INFORMATION
  Report Type: Spontaneous
  Country: US (occurrence: None)
  Receive Date: 20140616
  Receipt Date: 20140616
  Transmission Date: 20141212
  Serious: No
  Sender: FDA-Public Use
  Company Number: None

PATIENT
  Age: 29 Year
  Sex: Female
  Weight: 89.36 kg

DRUGS (1)
  1. BIRTH CONTROL PATCH XULANE 150-35 MCG [Suspect]
     Indication: CONTRACEPTION
     Dosage: 1 PATCH WEAR FOR A WEEK, APPLIED AS MEDICATION PATCH TO SKIN
     Dates: start: 20140608, end: 20140611

REACTIONS (2)
  - Application site pruritus [None]
  - Application site rash [None]
